FAERS Safety Report 8328260-5 (Version None)
Quarter: 2012Q2

REPORT INFORMATION
  Report Type: 
  Country: None (occurrence: None)
  Receive Date: 20120502
  Receipt Date: 20120424
  Transmission Date: 20120825
  Serious: Yes (Hospitalization)
  Sender: FDA-Public Use
  Company Number: JP-ASTELLAS-2012JP003570

PATIENT
  Age: 41 Year
  Sex: Female

DRUGS (5)
  1. PENTASA [Concomitant]
     Dosage: 4000 MG, UNKNOWN/D
     Route: 048
     Dates: start: 20120410
  2. PREDNISOLONE [Concomitant]
     Dosage: 15 MG, UNKNOWN/D
     Route: 048
     Dates: start: 20111101
  3. OMEPRAZOLE [Concomitant]
     Dosage: 20 MG, UNKNOWN/D
     Route: 048
     Dates: start: 20111101
  4. PROGRAF [Suspect]
     Indication: COLITIS ULCERATIVE
     Dosage: 4 MG, UNKNOWN/D
     Route: 048
     Dates: start: 20120414, end: 20120418
  5. IMURAN [Concomitant]
     Dosage: 50 MG, UNKNOWN/D
     Route: 048
     Dates: start: 20120301

REACTIONS (1)
  - LIVER DISORDER [None]
